FAERS Safety Report 4829250-7 (Version None)
Quarter: 2005Q4

REPORT INFORMATION
  Report Type: 
  Country: None (occurrence: None)
  Receive Date: 20051028
  Receipt Date: 20050803
  Transmission Date: 20060501
  Serious: No
  Sender: FDA-Public Use
  Company Number: COT_0159_2005

PATIENT
  Age: 63 Year
  Weight: 52.6173 kg

DRUGS (8)
  1. VENTAVIS [Suspect]
     Indication: PULMONARY HYPERTENSION
  2. TRACLEER [Concomitant]
  3. COUMADIN [Concomitant]
  4. ZOLOFT [Concomitant]
  5. LASIX [Concomitant]
  6. ZANTAC [Concomitant]
  7. LORAZEPAM [Concomitant]
  8. K-DUR 10 [Concomitant]

REACTIONS (1)
  - NAUSEA [None]
